FAERS Safety Report 18619326 (Version 3)
Quarter: 2021Q2

REPORT INFORMATION
  Report Type: Spontaneous
  Country: US (occurrence: US)
  Receive Date: 20201215
  Receipt Date: 20210414
  Transmission Date: 20210717
  Serious: Yes (Other)
  Sender: FDA-Public Use
  Company Number: US-PFIZER INC-2020494459

PATIENT
  Age: 64 Year
  Sex: Female

DRUGS (1)
  1. XELJANZ XR [Suspect]
     Active Substance: TOFACITINIB CITRATE
     Indication: RHEUMATOID ARTHRITIS
     Dosage: 11 MG, 1X/DAY
     Route: 048
     Dates: start: 20201118, end: 202103

REACTIONS (13)
  - Abdominal discomfort [Recovering/Resolving]
  - Insomnia [Unknown]
  - Nausea [Not Recovered/Not Resolved]
  - Flatulence [Recovering/Resolving]
  - Pruritus [Recovering/Resolving]
  - Hypertension [Recovering/Resolving]
  - Vomiting [Not Recovered/Not Resolved]
  - Chest pain [Recovering/Resolving]
  - Dyspnoea [Recovering/Resolving]
  - Fatigue [Not Recovered/Not Resolved]
  - Diarrhoea [Unknown]
  - Lacrimation increased [Unknown]
  - Eye discharge [Recovering/Resolving]
